FAERS Safety Report 8519708-1 (Version None)
Quarter: 2012Q3

REPORT INFORMATION
  Report Type: 
  Country: None (occurrence: None)
  Receive Date: 20120719
  Receipt Date: 20120705
  Transmission Date: 20120928
  Serious: Yes (Hospitalization)
  Sender: FDA-Public Use
  Company Number: JP-009507513-1205USA05057

PATIENT

DRUGS (7)
  1. SITAGLIPTIN PHOSPHATE [Suspect]
     Indication: TYPE 2 DIABETES MELLITUS
     Dosage: 25 MG, QD
     Route: 048
     Dates: start: 20120505, end: 20120518
  2. AMLODIPINE BESYLATE [Concomitant]
  3. PURSENNID (SENNOSIDES) [Concomitant]
  4. ACETAMINOPHEN [Concomitant]
  5. PRAMIPEXOLE DIHYDROCHLORIDE [Concomitant]
  6. SELEGILINE [Concomitant]
  7. MENEST [Concomitant]

REACTIONS (1)
  - ILEUS [None]
